FAERS Safety Report 16549237 (Version 1)
Quarter: 2019Q3

REPORT INFORMATION
  Report Type: Report from Study
  Country: None (occurrence: DE)
  Receive Date: 20190709
  Receipt Date: 20190709
  Transmission Date: 20191004
  Serious: Yes (Other)
  Sender: FDA-Public Use
  Company Number: DE-ABBVIE-19K-062-2842140-00

PATIENT
  Age: 56 Year
  Sex: Male
  Weight: 58 kg

DRUGS (3)
  1. MAVIRET [Suspect]
     Active Substance: GLECAPREVIR\PIBRENTASVIR
     Indication: CHRONIC HEPATITIS C
     Route: 048
     Dates: start: 20190208, end: 20190403
  2. RIVOTRIL [Concomitant]
     Active Substance: CLONAZEPAM
     Indication: DRUG DETOXIFICATION
  3. PANTOPRAZOL [Concomitant]
     Active Substance: PANTOPRAZOLE SODIUM
     Indication: PRODUCT USED FOR UNKNOWN INDICATION

REACTIONS (7)
  - Haemolysis [Unknown]
  - Vitamin B12 deficiency [Unknown]
  - Red blood cell count decreased [Unknown]
  - Jaundice [Recovered/Resolved]
  - Folate deficiency [Unknown]
  - Drug-induced liver injury [Unknown]
  - Haemoglobin decreased [Unknown]

NARRATIVE: CASE EVENT DATE: 2019
